FAERS Safety Report 24560039 (Version 2)
Quarter: 2024Q4

REPORT INFORMATION
  Report Type: Spontaneous
  Country: JP (occurrence: JP)
  Receive Date: 20241029
  Receipt Date: 20241113
  Transmission Date: 20250115
  Serious: Yes (Death, Other)
  Sender: ALEXION PHARMACEUTICALS
  Company Number: JP-ASTRAZENECA-240104761_064320_P_1

PATIENT
  Age: 91 Year

DRUGS (12)
  1. ANDEXXA [Suspect]
     Active Substance: ANDEXANET ALFA
     Indication: Haemorrhage
     Dosage: METHOD B: 800 MG IV AT A RATE OF 30 MG/MIN, FOLLOWED BY 960 MG IV AT A RATE OF 8 MG/MIN FOR 2 H
  2. ANDEXXA [Suspect]
     Active Substance: ANDEXANET ALFA
     Indication: Cerebral haemorrhage
     Dosage: METHOD B: 800 MG IV AT A RATE OF 30 MG/MIN, FOLLOWED BY 960 MG IV AT A RATE OF 8 MG/MIN FOR 2 H
  3. ANDEXXA [Suspect]
     Active Substance: ANDEXANET ALFA
     Dosage: METHOD B: 800 MG IV AT A RATE OF 30 MG/MIN, FOLLOWED BY 960 MG IV AT A RATE OF 8 MG/MIN FOR 2 H
  4. ANDEXXA [Suspect]
     Active Substance: ANDEXANET ALFA
     Dosage: METHOD B: 800 MG IV AT A RATE OF 30 MG/MIN, FOLLOWED BY 960 MG IV AT A RATE OF 8 MG/MIN FOR 2 H
  5. ANDEXXA [Suspect]
     Active Substance: ANDEXANET ALFA
     Dosage: METHOD B: 800 MG IV AT A RATE OF 30 MG/MIN, FOLLOWED BY 960 MG IV AT A RATE OF 8 MG/MIN FOR 2 H
  6. ANDEXXA [Suspect]
     Active Substance: ANDEXANET ALFA
     Dosage: METHOD B: 800 MG IV AT A RATE OF 30 MG/MIN, FOLLOWED BY 960 MG IV AT A RATE OF 8 MG/MIN FOR 2 H
  7. ANDEXXA [Suspect]
     Active Substance: ANDEXANET ALFA
     Dosage: METHOD B: 800 MG IV AT A RATE OF 30 MG/MIN, FOLLOWED BY 960 MG IV AT A RATE OF 8 MG/MIN FOR 2 H
  8. ANDEXXA [Suspect]
     Active Substance: ANDEXANET ALFA
     Dosage: METHOD B: 800 MG IV AT A RATE OF 30 MG/MIN, FOLLOWED BY 960 MG IV AT A RATE OF 8 MG/MIN FOR 2 H
  9. XARELTO [Concomitant]
     Active Substance: RIVAROXABAN
     Dosage: DOSE UNKNOWN
  10. XARELTO [Concomitant]
     Active Substance: RIVAROXABAN
     Indication: Cerebral infarction
     Dosage: DOSE UNKNOWN
  11. XARELTO [Concomitant]
     Active Substance: RIVAROXABAN
     Dosage: DOSE UNKNOWN
  12. XARELTO [Concomitant]
     Active Substance: RIVAROXABAN
     Dosage: DOSE UNKNOWN

REACTIONS (2)
  - Cerebral haemorrhage [Fatal]
  - Brain oedema [Unknown]
